FAERS Safety Report 5973878 (Version 2)
Quarter: 2020Q3

REPORT INFORMATION
  Report Type: Report from Study
  Country: ES (occurrence: ES)
  Receive Date: 20060201
  Receipt Date: 20060403
  Transmission Date: 20201104
  Serious: Yes (Death, Other)
  Sender: FDA-Public Use
  Company Number: ES-JNJFOC-20050203191

PATIENT
  Age: 87 Year
  Sex: Male

DRUGS (13)
  1. REOPRO [Suspect]
     Active Substance: ABCIXIMAB
     Route: 042
  2. REOPRO [Suspect]
     Active Substance: ABCIXIMAB
     Route: 042
  3. ASPIRIN. [Concomitant]
     Active Substance: ASPIRIN
     Route: 048
  4. DIGOXIN. [Concomitant]
     Active Substance: DIGOXIN
     Route: 048
  5. ENALAPRIL [Concomitant]
     Active Substance: ENALAPRIL
     Route: 042
  6. LOSARTAN POTASSIUM. [Concomitant]
     Active Substance: LOSARTAN POTASSIUM
     Route: 048
  7. OMEPRAZOLE. [Concomitant]
     Active Substance: OMEPRAZOLE
     Route: 048
  8. TERAZOSIN HYDROCHLORIDE. [Concomitant]
     Active Substance: TERAZOSIN HYDROCHLORIDE
     Route: 048
  9. CAMPHOR WATER. [Concomitant]
     Active Substance: CAMPHOR WATER
     Route: 042
  10. SODIUM NITRITE [Concomitant]
     Active Substance: SODIUM NITRITE
     Route: 042
  11. AMMONIUM ACETATE. [Concomitant]
     Active Substance: AMMONIUM ACETATE
     Route: 042
  12. ANTICOAGULANT SODIUM CITRATE NOS [Concomitant]
     Active Substance: SODIUM CITRATE
     Route: 042
  13. INDAPAMIDE. [Concomitant]
     Active Substance: INDAPAMIDE
     Route: 048

REACTIONS (5)
  - Drug interaction [None]
  - Haematuria [Fatal]
  - Iatrogenic injury [None]
  - Atrial fibrillation [None]
  - Urethral injury [None]

NARRATIVE: CASE EVENT DATE: 20050208
